FAERS Safety Report 12622457 (Version 2)
Quarter: 2016Q4

REPORT INFORMATION
  Report Type: Report from Study
  Country: BR (occurrence: BR)
  Receive Date: 20160804
  Receipt Date: 20161101
  Transmission Date: 20170207
  Serious: Yes (Death, Hospitalization)
  Sender: FDA-Public Use
  Company Number: BR-AEGERION PHARMACEUTICALS-AEGR002684

PATIENT

DRUGS (2)
  1. LEVOID [Concomitant]
     Active Substance: LEVOTHYROXINE
     Indication: PRODUCT USED FOR UNKNOWN INDICATION
     Dosage: 75 MCG, UNK
     Route: 015
  2. JUXTAPID [Suspect]
     Active Substance: LOMITAPIDE MESYLATE
     Indication: PRODUCT USED FOR UNKNOWN INDICATION
     Dosage: 5 MG, QD
     Route: 015
     Dates: start: 2014, end: 20141117

REACTIONS (2)
  - Premature baby [Unknown]
  - Nosocomial infection [Fatal]

NARRATIVE: CASE EVENT DATE: 2015
